FAERS Safety Report 12514965 (Version 2)
Quarter: 2016Q3

REPORT INFORMATION
  Report Type: Spontaneous
  Country: US (occurrence: US)
  Receive Date: 20160630
  Receipt Date: 20160912
  Transmission Date: 20161109
  Serious: Yes (Hospitalization)
  Sender: FDA-Public Use
  Company Number: US-JNJFOC-20160522805

PATIENT
  Age: 67 Year
  Sex: Male

DRUGS (1)
  1. XARELTO [Suspect]
     Active Substance: RIVAROXABAN
     Indication: PRODUCT USED FOR UNKNOWN INDICATION
     Dosage: DOSE: 15MG, 20 MG
     Route: 048
     Dates: start: 20120502, end: 20121002

REACTIONS (1)
  - Post procedural haemorrhage [Unknown]

NARRATIVE: CASE EVENT DATE: 20121014
